FAERS Safety Report 8071993-9 (Version None)
Quarter: 2012Q1

REPORT INFORMATION
  Report Type: 
  Country: None (occurrence: None)
  Receive Date: 20120126
  Receipt Date: 20120117
  Transmission Date: 20120608
  Serious: Yes (Other)
  Sender: FDA-Public Use
  Company Number: US-BAYER-2011-066435

PATIENT
  Age: 34 Year
  Sex: Female
  Weight: 100 kg

DRUGS (6)
  1. YASMIN [Suspect]
     Indication: MENSTRUAL CYCLE MANAGEMENT
     Dosage: UNK
     Dates: start: 20090301, end: 20090701
  2. CLOBETASOL [Concomitant]
     Dosage: 0.5 %, UNK
     Route: 061
     Dates: start: 20090428
  3. CLINDAMYCIN [Concomitant]
     Dosage: 150 MG, UNK
     Route: 048
     Dates: start: 20090421
  4. LEVAQUIN [Concomitant]
     Dosage: 250 MG, UNK
     Route: 048
     Dates: start: 20090517, end: 20090520
  5. YASMIN [Suspect]
     Indication: CONTRACEPTION
     Dosage: UNK
     Dates: start: 20030601, end: 20041101
  6. CEPHALEXIN [Concomitant]
     Dosage: 500 MG, UNK
     Route: 048
     Dates: start: 20090421

REACTIONS (2)
  - DEEP VEIN THROMBOSIS [None]
  - PAIN [None]
